FAERS Safety Report 9164815 (Version 1)
Quarter: 2013Q1

REPORT INFORMATION
  Report Type: Spontaneous
  Country: JP (occurrence: JP)
  Receive Date: 20130315
  Receipt Date: 20130315
  Transmission Date: 20140127
  Serious: Yes (Hospitalization)
  Sender: FDA-Public Use
  Company Number: JP-PFIZER INC-2013059290

PATIENT
  Age: 68 Year
  Sex: Female
  Weight: 59 kg

DRUGS (4)
  1. CHAMPIX [Suspect]
     Indication: NICOTINE DEPENDENCE
     Dosage: 0.5 MG, 1X/DAY
     Route: 048
     Dates: start: 20130208, end: 20130210
  2. CHAMPIX [Suspect]
     Dosage: 0.5 MG, 2X/DAY
     Route: 048
     Dates: start: 20130211, end: 20130214
  3. DIOVAN [Concomitant]
     Indication: HYPERTENSION
     Dosage: 80 MG, 1X/DAY
     Route: 048
     Dates: start: 20010316
  4. BENIDIPINE HYDROCHLORIDE [Concomitant]
     Indication: HYPERTENSION
     Dosage: 8 MG, 1X/DAY
     Route: 048
     Dates: start: 20091015

REACTIONS (1)
  - Pain [Recovering/Resolving]
